FAERS Safety Report 20934281 (Version 3)
Quarter: 2022Q3

REPORT INFORMATION
  Report Type: Spontaneous
  Country: US (occurrence: US)
  Receive Date: 20220608
  Receipt Date: 20220914
  Transmission Date: 20221027
  Serious: No
  Sender: FDA-Public Use
  Company Number: US-BRISTOL-MYERS SQUIBB COMPANY-2022-040000

PATIENT
  Age: 60 Year
  Sex: Female

DRUGS (2)
  1. ORENCIA [Suspect]
     Active Substance: ABATACEPT
     Indication: Rheumatoid arthritis
     Dosage: BATCH NUMBER: ACB8322, EXPIRATION DATE: 31-OCT-2023
     Route: 058
     Dates: start: 20220330
  2. ORENCIA [Suspect]
     Active Substance: ABATACEPT
     Dosage: EVERY WEEK
     Route: 058
     Dates: start: 20220330

REACTIONS (5)
  - Oropharyngeal discomfort [Unknown]
  - Joint swelling [Unknown]
  - Arthralgia [Unknown]
  - Pruritus [Unknown]
  - Urticaria [Unknown]
